FAERS Safety Report 9636447 (Version 1)
Quarter: 2013Q4

REPORT INFORMATION
  Report Type: Spontaneous
  Country: US (occurrence: None)
  Receive Date: 20131017
  Receipt Date: 20131017
  Transmission Date: 20140711
  Serious: Yes (Other)
  Sender: FDA-Public Use
  Company Number: 2013AP008867

PATIENT
  Age: 72 Year
  Sex: Female

DRUGS (8)
  1. ALENDRONATE (ALENDRONATE SODIUM) [Suspect]
     Indication: OSTEOPOROSIS
     Route: 048
     Dates: start: 201308, end: 201308
  2. CALCIUM (CALCIUM) [Suspect]
     Indication: OSTEOPOROSIS
     Dates: start: 201308, end: 201308
  3. VITAMIN D3 [Suspect]
     Dates: start: 201308, end: 201308
  4. MADOPAR [Suspect]
     Indication: PARKINSON^S DISEASE
     Route: 048
     Dates: start: 20081201
  5. JUMEX [Suspect]
     Indication: PARKINSON^S DISEASE
     Route: 048
     Dates: start: 20081201
  6. MYDETON (TOLPERISONE HYDROCHLORIDE) [Suspect]
     Indication: MUSCLE RELAXANT THERAPY
     Route: 048
     Dates: start: 20081201
  7. XANAX (ALPRAZOLAM) [Suspect]
     Indication: SLEEP DISORDER
     Dates: start: 20081201
  8. PROTELOS [Suspect]
     Indication: OSTEOPOROSIS
     Dates: start: 20081201

REACTIONS (2)
  - Haematochezia [None]
  - Abdominal pain [None]
